FAERS Safety Report 19581192 (Version 1)
Quarter: 2021Q3

REPORT INFORMATION
  Report Type: Spontaneous
  Country: CN (occurrence: CN)
  Receive Date: 20210720
  Receipt Date: 20210720
  Transmission Date: 20211014
  Serious: Yes (Other)
  Sender: FDA-Public Use
  Company Number: CN-ROCHE-2870781

PATIENT
  Age: 47 Year
  Sex: Male

DRUGS (5)
  1. LENALIDOMIDE [Concomitant]
     Active Substance: LENALIDOMIDE
     Dosage: FROM DAY 1 TO DAY 21
     Dates: start: 2019
  2. MABTHERA [Suspect]
     Active Substance: RITUXIMAB
     Indication: EXTRANODAL MARGINAL ZONE B-CELL LYMPHOMA (MALT TYPE)
     Dosage: ON DAY 0, R?COP REGIMEN
     Route: 065
     Dates: start: 20180327
  3. DEXAMETHASONE. [Concomitant]
     Active Substance: DEXAMETHASONE
     Dosage: FROM DAY 1 TO DAY 5, R?COP REGIMEN
     Dates: start: 20180327
  4. VINCRISTINE [Concomitant]
     Active Substance: VINCRISTINE
     Dosage: ON DAY 1, R?COP REGIMEN
     Dates: start: 20180327
  5. CYCLOPHOSPHAMIDE. [Concomitant]
     Active Substance: CYCLOPHOSPHAMIDE
     Dosage: ON DAY 1, R?COP REGIMEN
     Dates: start: 20180327

REACTIONS (2)
  - Acute kidney injury [Unknown]
  - Off label use [Unknown]
